FAERS Safety Report 6202496-1 (Version None)
Quarter: 2009Q2

REPORT INFORMATION
  Report Type: 
  Country: None (occurrence: None)
  Receive Date: 20090526
  Receipt Date: 20090522
  Transmission Date: 20091009
  Serious: Yes (Hospitalization, Other)
  Sender: FDA-Public Use
  Company Number: US-ASTRAZENECA-2009UW07438

PATIENT
  Age: 18 Year
  Sex: Male
  Weight: 102.1 kg

DRUGS (4)
  1. SEROQUEL [Suspect]
     Indication: TACHYPHRENIA
     Route: 048
     Dates: start: 20090319, end: 20090320
  2. SEROQUEL [Suspect]
     Indication: SOMNOLENCE
     Route: 048
     Dates: start: 20090319, end: 20090320
  3. SEROQUEL [Suspect]
     Indication: ANXIETY
     Route: 048
     Dates: start: 20090319, end: 20090320
  4. SEROQUEL [Suspect]
     Indication: DEPRESSION
     Route: 048
     Dates: start: 20090319, end: 20090320

REACTIONS (1)
  - HYPERTHERMIA [None]
